FAERS Safety Report 8302060-4 (Version None)
Quarter: 2012Q2

REPORT INFORMATION
  Report Type: 
  Country: None (occurrence: None)
  Receive Date: 20120420
  Receipt Date: 20120418
  Transmission Date: 20120825
  Serious: Yes (Death)
  Sender: FDA-Public Use
  Company Number: FR-MERCK-1108FRA00061

PATIENT
  Age: 83 Year
  Sex: Male
  Weight: 85 kg

DRUGS (12)
  1. ALBUTEROL [Concomitant]
     Route: 055
     Dates: start: 19990326, end: 20110802
  2. ACETAMINOPHEN [Concomitant]
     Route: 048
     Dates: start: 19941006, end: 20110802
  3. VALSARTAN [Concomitant]
     Route: 048
     Dates: start: 20090529, end: 20110802
  4. AMLODIPINE [Concomitant]
     Route: 048
     Dates: start: 20091116, end: 20110802
  5. JANUVIA [Suspect]
     Indication: TYPE 2 DIABETES MELLITUS
     Route: 048
     Dates: start: 20100521, end: 20110802
  6. GLIMEPIRIDE [Concomitant]
     Route: 048
     Dates: start: 20100817, end: 20110629
  7. GLIMEPIRIDE [Concomitant]
     Route: 048
     Dates: start: 20110630, end: 20110802
  8. ASPIRIN LYSINE [Concomitant]
     Route: 048
     Dates: start: 20051129, end: 20110802
  9. FLUVASTATIN SODIUM [Concomitant]
     Route: 048
     Dates: start: 19971229, end: 20110802
  10. GLIMEPIRIDE [Concomitant]
     Route: 048
     Dates: start: 20100521, end: 20100816
  11. FUROSEMIDE [Concomitant]
     Route: 048
     Dates: start: 20021129, end: 20110808
  12. NITROGLYCERIN [Concomitant]
     Route: 048
     Dates: start: 20021129, end: 20110802

REACTIONS (1)
  - PULMONARY EMBOLISM [None]
